FAERS Safety Report 6143047-X (Version None)
Quarter: 2009Q2

REPORT INFORMATION
  Report Type: 
  Country: None (occurrence: None)
  Receive Date: 20090401
  Receipt Date: 20090401
  Transmission Date: 20091009
  Serious: Yes (Hospitalization)
  Sender: FDA-Public Use
  Company Number: None

PATIENT
  Age: 45 Year
  Sex: Male
  Weight: 126.82 kg

DRUGS (1)
  1. PSEUDOEPHEDRINE HCL [Suspect]
     Dosage: 30 MG PRN PO
     Route: 048
     Dates: start: 20080930, end: 20081107

REACTIONS (3)
  - IRRITABILITY [None]
  - MANIA [None]
  - PSYCHOMOTOR HYPERACTIVITY [None]
